FAERS Safety Report 6847522-1 (Version None)
Quarter: 2010Q3

REPORT INFORMATION
  Report Type: 
  Country: None (occurrence: None)
  Receive Date: 20100716
  Receipt Date: 20100708
  Transmission Date: 20110219
  Serious: Yes (Other)
  Sender: FDA-Public Use
  Company Number: US-PFIZER INC-2010086887

PATIENT
  Sex: Female
  Weight: 117.91 kg

DRUGS (10)
  1. ZOLOFT [Suspect]
     Indication: DEPRESSION
     Dosage: 100MG DAILY
     Route: 048
     Dates: start: 20010101
  2. ZOLOFT [Suspect]
     Dosage: 200MG DAILY
     Route: 048
  3. ZOLOFT [Suspect]
     Dosage: 150MG DAILY
     Route: 048
  4. WELLBUTRIN [Concomitant]
     Indication: DEPRESSION
     Dosage: 150MG DAILY
     Route: 048
     Dates: start: 20050101
  5. METFORMIN [Concomitant]
     Indication: BLOOD GLUCOSE INCREASED
     Dosage: 1500 MG, 2X/DAY
     Route: 048
     Dates: start: 20080101
  6. FEXOFENADINE [Concomitant]
     Indication: HYPERSENSITIVITY
     Dosage: 180MG DAILY
     Route: 048
     Dates: start: 20090401
  7. CICLESONIDE [Concomitant]
     Indication: HYPERSENSITIVITY
     Dosage: 2 SPRAYS IN EACH NOSTRIL DAILY
     Route: 045
     Dates: start: 20090401
  8. OLOPATADINE HYDROCHLORIDE [Concomitant]
     Indication: HYPERSENSITIVITY
     Dosage: DAILY IN THE EVENING
     Route: 045
     Dates: start: 20090401
  9. AVANDIA [Concomitant]
     Indication: BLOOD GLUCOSE INCREASED
     Dosage: 2MG DAILY
     Route: 048
     Dates: start: 20100601
  10. LIRAGLUTIDE (NN2211) [Concomitant]
     Indication: BLOOD GLUCOSE INCREASED
     Dosage: 1.8ML DAILY
     Route: 058
     Dates: start: 20100601

REACTIONS (1)
  - COELIAC DISEASE [None]
